FAERS Safety Report 23217893 (Version 1)
Quarter: 2023Q4

REPORT INFORMATION
  Report Type: Spontaneous
  Country: None (occurrence: AU)
  Receive Date: 20231122
  Receipt Date: 20231122
  Transmission Date: 20240110
  Serious: Yes (Life-Threatening, Other)
  Sender: FDA-Public Use
  Company Number: AU-Harrow Eye-2148551

PATIENT
  Age: 25 Year
  Sex: Male

DRUGS (4)
  1. VERKAZIA [Suspect]
     Active Substance: CYCLOSPORINE
     Indication: Urticaria
  2. MONTELUKAST [Suspect]
     Active Substance: MONTELUKAST SODIUM
  3. PREDNISOLONE [Suspect]
     Active Substance: PREDNISOLONE
  4. HYDROXYCHLOROQUINE [Suspect]
     Active Substance: HYDROXYCHLOROQUINE

REACTIONS (4)
  - Angioedema [Unknown]
  - Urticaria [Unknown]
  - Drug ineffective [Unknown]
  - Off label use [Unknown]
